FAERS Safety Report 23891123 (Version 1)
Quarter: 2024Q2

REPORT INFORMATION
  Report Type: Other
  Country: CH (occurrence: None)
  Receive Date: 20240523
  Receipt Date: 20240523
  Transmission Date: 20240716
  Serious: Yes (Other)
  Sender: FDA-Public Use
  Company Number: CH-Invatech-000334

PATIENT
  Age: 67 Year
  Sex: Male

DRUGS (7)
  1. AMANTADINE [Suspect]
     Active Substance: AMANTADINE
     Indication: Gait disturbance
     Dosage: 100 MG DAILY
  2. BENSERAZIDE HYDROCHLORIDE\LEVODOPA [Concomitant]
     Active Substance: BENSERAZIDE HYDROCHLORIDE\LEVODOPA
     Indication: Product used for unknown indication
     Dosage: 200/50MG FOUR TIMES DAILY
  3. AMANTADINE [Suspect]
     Active Substance: AMANTADINE
     Indication: Gait disturbance
     Dosage: 100MG TWICE A DAY
  4. AMANTADINE [Suspect]
     Active Substance: AMANTADINE
     Indication: Balance disorder
     Dosage: 100 MG DAILY
  5. AMANTADINE [Suspect]
     Active Substance: AMANTADINE
     Indication: Balance disorder
     Dosage: 100 MG TWICE A DAY
  6. AMANTADINE [Suspect]
     Active Substance: AMANTADINE
     Indication: Gait disturbance
     Dosage: 100MG/DAY FOR TWO WEEKS
  7. AMANTADINE [Suspect]
     Active Substance: AMANTADINE
     Indication: Balance disorder
     Dosage: 100MG/DAY FOR TWO WEEKS

REACTIONS (2)
  - Opsoclonus [Recovered/Resolved]
  - Disease recurrence [Recovered/Resolved]
